FAERS Safety Report 10953129 (Version 2)
Quarter: 2015Q2

REPORT INFORMATION
  Report Type: Spontaneous
  Country: US (occurrence: None)
  Receive Date: 20150323
  Receipt Date: 20150506
  Transmission Date: 20150821
  Serious: Yes (Disabling, Other)
  Sender: FDA-Public Use
  Company Number: 2015-10884

PATIENT
  Age: 77 Year
  Sex: Female
  Weight: 63.5 kg

DRUGS (7)
  1. PREMARIN (ESTROGENS CONUGATED) [Concomitant]
  2. CALCIUM MAGNESIUM + VITAMIN D3 9CALCIUM, COLECALCIFEROL, MAGNESIUM) [Concomitant]
  3. OMEGA 3 6 9 (FISH OIL) [Concomitant]
  4. ZYRTEC [Concomitant]
     Active Substance: CETIRIZINE HYDROCHLORIDE
  5. EYLEA [Suspect]
     Active Substance: AFLIBERCEPT
     Indication: AGE-RELATED MACULAR DEGENERATION
     Dosage: 2 MG MILLIGRAM(S), LEFT EYE
     Route: 031
     Dates: start: 20140314
  6. LEVOTHYROXINE [Concomitant]
     Active Substance: LEVOTHYROXINE
  7. LUTEIN (XANTOFYL) [Concomitant]

REACTIONS (3)
  - Endophthalmitis [None]
  - Blindness transient [None]
  - Vitrectomy [None]

NARRATIVE: CASE EVENT DATE: 20140926
